FAERS Safety Report 14935102 (Version 1)
Quarter: 2018Q2

REPORT INFORMATION
  Report Type: Spontaneous
  Country: US (occurrence: US)
  Receive Date: 20180524
  Receipt Date: 20180524
  Transmission Date: 20180711
  Serious: Yes (Other)
  Sender: FDA-Public Use
  Company Number: US-BAUSCH-BL-2018-014838

PATIENT
  Sex: Female

DRUGS (5)
  1. BESIVANCE [Suspect]
     Active Substance: BESIFLOXACIN
     Indication: PRODUCT USED FOR UNKNOWN INDICATION
     Route: 047
  2. GATIFLOXACIN. [Concomitant]
     Active Substance: GATIFLOXACIN
     Indication: EYE INFECTION BACTERIAL
  3. TOBRAMYCIN AND DEXAMETHASONE [Suspect]
     Active Substance: DEXAMETHASONE\TOBRAMYCIN
     Indication: EYE INFLAMMATION
     Route: 047
  4. TOBRAMYCIN AND DEXAMETHASONE [Suspect]
     Active Substance: DEXAMETHASONE\TOBRAMYCIN
     Indication: INJURY CORNEAL
     Route: 047
  5. TOBRAMYCIN OPHTHALMIC SOLUTION USP 0.3% [Suspect]
     Active Substance: TOBRAMYCIN
     Indication: EYE INFECTION BACTERIAL
     Route: 047

REACTIONS (3)
  - Eye inflammation [Recovered/Resolved]
  - Vision blurred [Unknown]
  - Eye infection bacterial [Unknown]

NARRATIVE: CASE EVENT DATE: 201805
